FAERS Safety Report 17102344 (Version 2)
Quarter: 2019Q4

REPORT INFORMATION
  Report Type: Report from Study
  Country: US (occurrence: US)
  Receive Date: 20191202
  Receipt Date: 20191210
  Transmission Date: 20200122
  Serious: Yes (Death)
  Sender: FDA-Public Use
  Company Number: US-EXELIXIS-CABO-19025117

PATIENT
  Sex: Male
  Weight: 86.17 kg

DRUGS (1)
  1. CABOMETYX [Suspect]
     Active Substance: CABOZANTINIB S-MALATE
     Indication: HEPATOCELLULAR CARCINOMA
     Dosage: 40 MG

REACTIONS (4)
  - Fatigue [Unknown]
  - Malignant neoplasm progression [Fatal]
  - Hypersomnia [Unknown]
  - Asthenia [Unknown]
